FAERS Safety Report 6894416-1 (Version None)
Quarter: 2010Q3

REPORT INFORMATION
  Report Type: 
  Country: None (occurrence: None)
  Receive Date: 20100802
  Receipt Date: 20100721
  Transmission Date: 20110219
  Serious: Yes (Other)
  Sender: FDA-Public Use
  Company Number: US-WYE-H16358510

PATIENT
  Sex: Female
  Weight: 104.42 kg

DRUGS (8)
  1. EFFEXOR XR [Suspect]
     Indication: DEPRESSION
     Route: 048
     Dates: start: 20020101, end: 20100601
  2. AMLODIPINE [Concomitant]
     Dosage: UNKNOWN
  3. PLAVIX [Concomitant]
  4. NEXIUM [Concomitant]
     Dosage: UNKNOWN
  5. ACETYLSALICYLIC ACID SRT [Concomitant]
     Dosage: UNKNOWN
  6. CRESTOR [Concomitant]
  7. ZOLOFT [Suspect]
     Indication: DEPRESSION
     Dosage: UNKNOWN
  8. DIOVAN HCT [Concomitant]
     Dosage: 120 MG OR 160 MG

REACTIONS (4)
  - ABDOMINAL PAIN UPPER [None]
  - MESENTERITIS [None]
  - RENAL CYST [None]
  - WEIGHT INCREASED [None]
